FAERS Safety Report 4452737-6 (Version None)
Quarter: 2004Q3

REPORT INFORMATION
  Report Type: 
  Country: None (occurrence: None)
  Receive Date: 20040813
  Receipt Date: 20040616
  Transmission Date: 20050211
  Serious: No
  Sender: FDA-Public Use
  Company Number: S04-USA-03647-01

PATIENT
  Age: 90 Year
  Sex: Female
  Weight: 39.9165 kg

DRUGS (10)
  1. NAMENDA [Suspect]
     Indication: DEMENTIA
     Dosage: 15 MG QD PO
     Route: 048
     Dates: start: 20040605, end: 20040611
  2. NAMENDA [Suspect]
     Indication: DEMENTIA
     Dosage: 20 MG QD PO
     Route: 048
     Dates: start: 20040612
  3. NAMENDA [Suspect]
     Indication: DEMENTIA
     Dosage: 5 MG QD PO
     Route: 048
     Dates: start: 20040522, end: 20040528
  4. NAMENDA [Suspect]
     Indication: DEMENTIA
     Dosage: 10 MG QD PO
     Route: 048
     Dates: start: 20040529, end: 20040604
  5. SYNTHROID [Concomitant]
  6. ARICEPT [Concomitant]
  7. DETROL [Concomitant]
  8. MAVIK [Concomitant]
  9. HYDROCHLOROTHIAZIDE [Concomitant]
  10. ANTIBIOTICS (NOS) [Concomitant]

REACTIONS (3)
  - DEPRESSED MOOD [None]
  - DYSPNOEA [None]
  - NAUSEA [None]
